FAERS Safety Report 15686917 (Version 6)
Quarter: 2019Q1

REPORT INFORMATION
  Report Type: Report from Study
  Country: US (occurrence: US)
  Receive Date: 20181204
  Receipt Date: 20190226
  Transmission Date: 20190417
  Serious: Yes (Hospitalization)
  Sender: FDA-Public Use
  Company Number: US-ACTELION-A-NJ2018-182786

PATIENT
  Sex: Female

DRUGS (5)
  1. OPSUMIT [Suspect]
     Active Substance: MACITENTAN
     Indication: PULMONARY ARTERIAL HYPERTENSION
     Dosage: 10 MG, QD
     Route: 048
     Dates: start: 20170415
  2. UPTRAVI [Concomitant]
     Active Substance: SELEXIPAG
  3. ASPIRIN. [Concomitant]
     Active Substance: ASPIRIN
  4. ADCIRCA [Concomitant]
     Active Substance: TADALAFIL
  5. MULTIVITAMIN [Concomitant]
     Active Substance: VITAMINS

REACTIONS (4)
  - Product dose omission [Unknown]
  - Seizure [Unknown]
  - Hospitalisation [Unknown]
  - Headache [Recovered/Resolved]
